APPROVED DRUG PRODUCT: DRONEDARONE HYDROCHLORIDE
Active Ingredient: DRONEDARONE HYDROCHLORIDE
Strength: EQ 400MG BASE
Dosage Form/Route: TABLET;ORAL
Application: A205904 | Product #001 | TE Code: AB
Applicant: LUPIN INC
Approved: Jan 31, 2024 | RLD: No | RS: No | Type: RX